FAERS Safety Report 18359348 (Version 1)
Quarter: 2020Q4

REPORT INFORMATION
  Report Type: Spontaneous
  Country: US (occurrence: US)
  Receive Date: 20201007
  Receipt Date: 20201007
  Transmission Date: 20210114
  Serious: Yes (Hospitalization)
  Sender: FDA-Public Use
  Company Number: None

PATIENT
  Age: 60 Year
  Sex: Female

DRUGS (16)
  1. AMBRISENTAN 5MG [Suspect]
     Active Substance: AMBRISENTAN
     Indication: PULMONARY ARTERIAL HYPERTENSION
     Route: 048
     Dates: start: 20190926
  2. AMITRIPTYLIN [Concomitant]
     Active Substance: AMITRIPTYLINE
  3. ASPIROIN [Concomitant]
  4. SERTRALINE [Concomitant]
     Active Substance: SERTRALINE HYDROCHLORIDE
  5. HYDRAZALINE [Concomitant]
  6. HYDROCHLOR [Concomitant]
  7. METOPROL TAR [Concomitant]
  8. ATORVASTATIN [Concomitant]
     Active Substance: ATORVASTATIN
  9. RENEVELA [Concomitant]
  10. TOPIRAMATE. [Concomitant]
     Active Substance: TOPIRAMATE
  11. TRAMADOL. [Concomitant]
     Active Substance: TRAMADOL
  12. MELOXICAM. [Concomitant]
     Active Substance: MELOXICAM
  13. OMEPRAZOLE. [Concomitant]
     Active Substance: OMEPRAZOLE
  14. ADEMPAS [Concomitant]
     Active Substance: RIOCIGUAT
  15. AMLODIPINE [Concomitant]
     Active Substance: AMLODIPINE BESYLATE
  16. OFEV [Concomitant]
     Active Substance: NINTEDANIB

REACTIONS (3)
  - Haemoglobin decreased [None]
  - Vomiting [None]
  - Therapy interrupted [None]

NARRATIVE: CASE EVENT DATE: 20200101
